FAERS Safety Report 13998516 (Version 1)
Quarter: 2017Q3

REPORT INFORMATION
  Report Type: Spontaneous
  Country: US (occurrence: US)
  Receive Date: 20170921
  Receipt Date: 20170921
  Transmission Date: 20171128
  Serious: No
  Sender: FDA-Public Use
  Company Number: US-TEIKOKU PHARMA USA-TPU2017-00585

PATIENT
  Sex: Female
  Weight: 83.99 kg

DRUGS (4)
  1. COMPOUNDED LIDOCAINE CREAM [Concomitant]
     Indication: MOBILITY DECREASED
     Dosage: 12 PUMPS A DAY, WHILE NOT USING THE LIDOCAINE PATCH
  2. LIDOCAINE PATCH [Suspect]
     Active Substance: LIDOCAINE
     Indication: MOBILITY DECREASED
     Dosage: APPLIES A PATCH TO LOWER LUMBAR SPINE, ARM AND NECK FOR 12 HOURS ON THEN 12 HOURS OFF.
     Route: 061
  3. COMPOUNDED LIDOCAINE CREAM [Concomitant]
     Dosage: NEXT TO LIDOCAINE PATCH ON BACK, NECK AND ARM
  4. LIDOCAINE PATCH [Suspect]
     Active Substance: LIDOCAINE
     Dosage: APPLIES HALF A PATCH EACH TO LOWER LUMBAR SPINE, ARM AND NECK FOR 12 HOURS ON THEN 12 HOURS OFF.
     Route: 061

REACTIONS (2)
  - Dyskinesia [Unknown]
  - Varicella [Unknown]
